FAERS Safety Report 4714291-0 (Version None)
Quarter: 2005Q3

REPORT INFORMATION
  Report Type: 
  Country: None (occurrence: None)
  Receive Date: 20050714
  Receipt Date: 20041217
  Transmission Date: 20060218
  Serious: Yes (Hospitalization)
  Sender: FDA-Public Use
  Company Number: FR-NOVOPROD-241219

PATIENT
  Age: 45 Year
  Sex: Male
  Weight: 74 kg

DRUGS (8)
  1. NORDITROPIN SIMPLEXX [Suspect]
     Indication: GROWTH HORMONE DEFICIENCY
     Dosage: .3 MG, QD
     Route: 058
     Dates: start: 20030201, end: 20040416
  2. NORDITROPIN SIMPLEXX [Suspect]
     Dosage: .4 MG, UNK
     Route: 058
     Dates: start: 20040401, end: 20041101
  3. NORDITROPIN SIMPLEXX [Suspect]
     Dosage: .3 UNK, UNK
     Route: 058
     Dates: start: 20050520
  4. LEVOTHYROX [Concomitant]
     Indication: HYPOPITUITARISM
     Dosage: 100 UG, UNK
     Route: 048
     Dates: start: 19870101
  5. PANTESTON [Concomitant]
     Indication: HYPOPITUITARISM
     Dosage: 5 MG, QD
     Route: 048
     Dates: start: 19870101
  6. HYDROCORTISONE [Concomitant]
     Indication: HYPOPITUITARISM
     Dosage: 40 MG, QD
     Route: 048
     Dates: start: 19890101
  7. PARIET [Concomitant]
     Indication: ABDOMINAL PAIN
     Dosage: 20 MG, QD
     Route: 048
     Dates: start: 20040101
  8. TAHOR [Concomitant]
     Indication: HYPERCHOLESTEROLAEMIA
     Dosage: 10 MG, QD
     Route: 048
     Dates: start: 20040401

REACTIONS (1)
  - MENINGORRHAGIA [None]
